FAERS Safety Report 7665392 (Version 3)
Quarter: 2013Q2

REPORT INFORMATION
  Report Type: Spontaneous
  Country: US (occurrence: US)
  Receive Date: 20101112
  Receipt Date: 20130614
  Transmission Date: 20140414
  Serious: Yes (Other)
  Sender: FDA-Public Use
  Company Number: US-JNJFOC-20100509013

PATIENT
  Age: 47 Year
  Sex: Male

DRUGS (2)
  1. LEVAQUIN [Suspect]
     Indication: GASTRIC DISORDER
     Route: 048
  2. FLAGYL [Concomitant]
     Indication: GASTRIC DISORDER
     Route: 065

REACTIONS (4)
  - Tendon rupture [Unknown]
  - Muscle atrophy [Unknown]
  - Rotator cuff syndrome [Unknown]
  - Rotator cuff syndrome [Unknown]
